FAERS Safety Report 13084611 (Version 1)
Quarter: 2017Q1

REPORT INFORMATION
  Report Type: Spontaneous
  Country: FR (occurrence: FR)
  Receive Date: 20170104
  Receipt Date: 20170104
  Transmission Date: 20170428
  Serious: Yes (Hospitalization)
  Sender: FDA-Public Use
  Company Number: FR-PFIZER INC-2016600128

PATIENT
  Age: 39 Year
  Sex: Male
  Weight: 56 kg

DRUGS (36)
  1. ARACYTINE [Suspect]
     Active Substance: CYTARABINE
     Dosage: 40 MG, CYCLIC
     Route: 037
     Dates: start: 20160502, end: 20160502
  2. HYDROCORTISONE UPJOHN [Suspect]
     Active Substance: HYDROCORTISONE
     Dosage: 20 MG, CYCLIC
     Route: 037
     Dates: start: 20160423, end: 20160423
  3. LOVENOX [Concomitant]
     Active Substance: ENOXAPARIN SODIUM
     Dosage: UNK
  4. METHOTREXATE. [Concomitant]
     Active Substance: METHOTREXATE
     Dosage: 13.4 MG/M2, CYCLIC
     Dates: start: 20160429
  5. PREDNISONE. [Concomitant]
     Active Substance: PREDNISONE
     Dosage: 100 MG, CYCLIC
     Dates: start: 20160421, end: 20160427
  6. METHOTREXATE (METHOTREXATE SODIUM) [Suspect]
     Active Substance: METHOTREXATE SODIUM
     Dosage: 15 MG, CYCLIC
     Route: 037
     Dates: start: 20160527, end: 20160527
  7. ARACYTINE [Suspect]
     Active Substance: CYTARABINE
     Dosage: 40 MG, CYCLIC
     Route: 037
     Dates: start: 20160423, end: 20160423
  8. ARACYTINE [Suspect]
     Active Substance: CYTARABINE
     Dosage: 40 MG, CYCLIC
     Route: 037
     Dates: start: 20160527, end: 20160527
  9. ARACYTINE [Suspect]
     Active Substance: CYTARABINE
     Dosage: 40 MG, CYCLIC
     Route: 037
     Dates: start: 20160601, end: 20160601
  10. METHOTREXATE (METHOTREXATE SODIUM) [Suspect]
     Active Substance: METHOTREXATE SODIUM
     Dosage: 15 MG, CYCLIC
     Route: 037
     Dates: start: 20160423, end: 20160423
  11. METHOTREXATE (METHOTREXATE SODIUM) [Suspect]
     Active Substance: METHOTREXATE SODIUM
     Dosage: 15 MG, CYCLIC
     Route: 037
     Dates: start: 20160506, end: 20160506
  12. METHOTREXATE (METHOTREXATE SODIUM) [Suspect]
     Active Substance: METHOTREXATE SODIUM
     Dosage: 15 MG, CYCLIC
     Route: 037
     Dates: start: 20160519, end: 20160519
  13. HYDROCORTISONE UPJOHN [Suspect]
     Active Substance: HYDROCORTISONE
     Dosage: 20 MG, CYCLIC
     Route: 037
     Dates: start: 20160519, end: 20160519
  14. BACTRIM [Concomitant]
     Active Substance: SULFAMETHOXAZOLE\TRIMETHOPRIM
     Dosage: UNK
  15. RITUXIMAB [Concomitant]
     Active Substance: RITUXIMAB
     Dosage: 600 MG, CYCLIC ON D1 AND D7
     Dates: start: 20160429
  16. VINCRISTINE [Concomitant]
     Active Substance: VINCRISTINE
     Dosage: 1.7 MG, CYCLIC
     Dates: start: 20160421, end: 20160427
  17. ARACYTINE [Suspect]
     Active Substance: CYTARABINE
     Dosage: 40 MG, CYCLIC
     Route: 037
     Dates: start: 20160506, end: 20160506
  18. HYDROCORTISONE UPJOHN [Suspect]
     Active Substance: HYDROCORTISONE
     Dosage: 20 MG, CYCLIC
     Route: 037
     Dates: start: 20160527, end: 20160527
  19. VINCRISTINE [Concomitant]
     Active Substance: VINCRISTINE
     Dosage: 2 MG, CYCLIC, ON D2
     Dates: start: 20160429
  20. CYCLOPHOSPHAMIDE. [Concomitant]
     Active Substance: CYCLOPHOSPHAMIDE
     Dosage: 500 MG, CYCLIC
     Dates: start: 20160421, end: 20160427
  21. CYCLOPHOSPHAMIDE. [Concomitant]
     Active Substance: CYCLOPHOSPHAMIDE
     Dosage: 840 MG, CYCLIC, ON D3, D4 AND D5
     Dates: start: 20160429
  22. CALCIUM FOLINATE [Concomitant]
     Active Substance: LEUCOVORIN CALCIUM
     Dosage: UNK
     Dates: start: 20160429
  23. HYDROCORTISONE UPJOHN [Suspect]
     Active Substance: HYDROCORTISONE
     Dosage: 20 MG, CYCLIC
     Route: 037
     Dates: start: 20160506, end: 20160506
  24. EFFEXOR [Concomitant]
     Active Substance: VENLAFAXINE HYDROCHLORIDE
     Dosage: UNK
  25. CORTANCYL [Concomitant]
     Active Substance: PREDNISONE
     Dosage: UNK
  26. ZELITREX [Concomitant]
     Active Substance: VALACYCLOVIR HYDROCHLORIDE
     Dosage: UNK
  27. DOXORUBICIN [Concomitant]
     Active Substance: DOXORUBICIN
     Dosage: 100 MG, CYCLIC ON D3
     Dates: start: 20160429
  28. ARACYTINE [Suspect]
     Active Substance: CYTARABINE
     Dosage: 40 MG, CYCLIC
     Route: 037
     Dates: start: 20160519, end: 20160519
  29. METHOTREXATE (METHOTREXATE SODIUM) [Suspect]
     Active Substance: METHOTREXATE SODIUM
     Dosage: 15 MG, CYCLIC
     Route: 037
     Dates: start: 20160502, end: 20160502
  30. HYDROCORTISONE UPJOHN [Suspect]
     Active Substance: HYDROCORTISONE
     Dosage: 20 MG, CYCLIC
     Route: 037
     Dates: start: 20160601, end: 20160601
  31. CYTARABINE. [Concomitant]
     Active Substance: CYTARABINE
     Dosage: 50 MG, CYCLIC ON D1, D2, D3, D4, D5
     Dates: start: 20160609
  32. VELBE [Concomitant]
     Active Substance: VINBLASTINE SULFATE
     Dosage: 200 MG, CYCLIC ON D2, D3, D4, D5
     Dates: start: 20160610
  33. METHOTREXATE (METHOTREXATE SODIUM) [Suspect]
     Active Substance: METHOTREXATE SODIUM
     Dosage: 15 MG, CYCLIC
     Route: 037
     Dates: start: 20160601, end: 20160601
  34. HYDROCORTISONE UPJOHN [Suspect]
     Active Substance: HYDROCORTISONE
     Dosage: 20 MG, CYCLIC
     Route: 037
     Dates: start: 20160502, end: 20160502
  35. EMEND [Concomitant]
     Active Substance: APREPITANT
     Dosage: UNK
  36. CYTARABINE. [Concomitant]
     Active Substance: CYTARABINE
     Dosage: 3000 MG/M2, CYCLIC ON D2, J3, J4, D5
     Dates: start: 20160610

REACTIONS (4)
  - Anal incontinence [Not Recovered/Not Resolved]
  - Motor dysfunction [Recovering/Resolving]
  - Aplasia [Recovered/Resolved]
  - Paraparesis [Not Recovered/Not Resolved]

NARRATIVE: CASE EVENT DATE: 201604
